FAERS Safety Report 4912738-8 (Version None)
Quarter: 2006Q1

REPORT INFORMATION
  Report Type: 
  Country: None (occurrence: None)
  Receive Date: 20060215
  Receipt Date: 20060201
  Transmission Date: 20060701
  Serious: Yes (Hospitalization)
  Sender: FDA-Public Use
  Company Number: US-AVENTIS-200611280US

PATIENT
  Sex: Female

DRUGS (3)
  1. KETEK [Suspect]
     Indication: SINUSITIS
     Dosage: DOSE: UNK
     Dates: start: 20060125
  2. GINKO BILOBA [Concomitant]
     Dosage: DOSE: UNKNOWN
  3. COUGH AND COLD PREPARATIONS [Concomitant]
     Dosage: DOSE: UNK

REACTIONS (2)
  - DIPLOPIA [None]
  - DYSPHAGIA [None]
